FAERS Safety Report 9496887 (Version 2)
Quarter: 2013Q4

REPORT INFORMATION
  Report Type: Report from Study
  Country: GB (occurrence: GB)
  Receive Date: 20130904
  Receipt Date: 20131010
  Transmission Date: 20140711
  Serious: Yes (Other)
  Sender: FDA-Public Use
  Company Number: GB-ROCHE-1269643

PATIENT
  Age: 84 Year
  Sex: Male

DRUGS (6)
  1. RANIBIZUMAB [Suspect]
     Indication: PRODUCT USED FOR UNKNOWN INDICATION
     Dosage: FREQUENCY : PRN
     Route: 050
     Dates: start: 20080527
  2. RANIBIZUMAB [Suspect]
     Dosage: FREQUENCY : PRN
     Route: 050
     Dates: start: 20111011
  3. ETORICOXIB [Concomitant]
     Route: 065
     Dates: start: 20050526
  4. ETORICOXIB [Concomitant]
     Route: 065
     Dates: start: 20111110
  5. TAMSULOSIN [Concomitant]
     Route: 065
     Dates: start: 20050407
  6. TAMSULOSIN [Concomitant]
     Route: 065
     Dates: start: 20111110

REACTIONS (2)
  - Atrial fibrillation [Recovered/Resolved with Sequelae]
  - Bundle branch block right [Unknown]
